FAERS Safety Report 19798352 (Version 1)
Quarter: 2021Q3

REPORT INFORMATION
  Report Type: Spontaneous
  Country: US (occurrence: US)
  Receive Date: 20210907
  Receipt Date: 20210907
  Transmission Date: 20211014
  Serious: Yes (Other)
  Sender: FDA-Public Use
  Company Number: None

PATIENT
  Age: 57 Year
  Sex: Male
  Weight: 64.5 kg

DRUGS (10)
  1. CYMBALTA 60MG QHS [Concomitant]
  2. FENTANYL 25MCG Q72H [Concomitant]
  3. ERLEADA [Suspect]
     Active Substance: APALUTAMIDE
     Indication: PROSTATE CANCER
     Route: 048
  4. OXYCODONE 10MG Q6H [Concomitant]
  5. PANTOPRAZOLE 20MG QD [Concomitant]
  6. ERLEADA [Suspect]
     Active Substance: APALUTAMIDE
     Indication: METASTASES TO BONE
     Route: 048
  7. PROCHLORPERAZINE 10MG Q6H PRN [Concomitant]
  8. ATORVASTATIN 40MG QD [Concomitant]
  9. DOK 100MG BID PRN [Concomitant]
  10. MIRTAZAPINE 15MG QHS [Concomitant]

REACTIONS (4)
  - Pain [None]
  - Joint swelling [None]
  - Muscle tightness [None]
  - Decreased appetite [None]

NARRATIVE: CASE EVENT DATE: 20210816
